FAERS Safety Report 4384524-1 (Version None)
Quarter: 2004Q2

REPORT INFORMATION
  Report Type: 
  Country: None (occurrence: None)
  Receive Date: 20040610
  Receipt Date: 20040504
  Transmission Date: 20050107
  Serious: Yes (Other)
  Sender: FDA-Public Use
  Company Number: A03200401410

PATIENT
  Age: 64 Year
  Sex: Female
  Weight: 81.1939 kg

DRUGS (6)
  1. ELOXATIN [Suspect]
     Indication: COLORECTAL CANCER STAGE III
     Dosage: 130 MG/M2 Q2W - INTRAVENOUS NOS
     Route: 042
     Dates: start: 20040503, end: 20040503
  2. ELOXATIN [Suspect]
     Indication: METASTASES TO LIVER
     Dosage: 130 MG/M2 Q2W - INTRAVENOUS NOS
     Route: 042
     Dates: start: 20040503, end: 20040503
  3. CAPECITABINE [Concomitant]
  4. SIMVASTATIN [Concomitant]
  5. ESCITALOPRAM OXALATE [Concomitant]
  6. DILTIAZEM HYDROCHLORIDE [Concomitant]

REACTIONS (6)
  - ANAPHYLACTIC REACTION [None]
  - ASTHENIA [None]
  - HYPOKALAEMIA [None]
  - SWELLING FACE [None]
  - SWOLLEN TONGUE [None]
  - THROAT TIGHTNESS [None]
